FAERS Safety Report 5657055-6 (Version None)
Quarter: 2008Q1

REPORT INFORMATION
  Report Type: 
  Country: None (occurrence: None)
  Receive Date: 20080310
  Receipt Date: 20080303
  Transmission Date: 20080703
  Serious: Yes (Hospitalization)
  Sender: FDA-Public Use
  Company Number: FR-AVENTIS-200810888FR

PATIENT
  Age: 50 Year
  Sex: Male

DRUGS (6)
  1. FLAGYL [Suspect]
     Indication: ABSCESS
     Route: 042
     Dates: start: 20071012, end: 20071201
  2. FORTUM                             /00559702/ [Suspect]
     Indication: ABSCESS
     Route: 042
     Dates: start: 20071022, end: 20071201
  3. GARDENALE                          /00023202/ [Concomitant]
     Indication: ABSCESS
     Route: 048
  4. DAFALGAN                           /00020001/ [Concomitant]
     Indication: ABSCESS
     Route: 048
  5. DIFFU K [Concomitant]
     Route: 048
  6. SMECTA                             /01255901/ [Concomitant]
     Route: 048

REACTIONS (5)
  - BALANCE DISORDER [None]
  - CEREBELLAR ATAXIA [None]
  - GAIT DISTURBANCE [None]
  - HEMIPARESIS [None]
  - SPEECH DISORDER [None]
